FAERS Safety Report 13922520 (Version 2)
Quarter: 2017Q3

REPORT INFORMATION
  Report Type: Report from Study
  Country: JP (occurrence: JP)
  Receive Date: 20170830
  Receipt Date: 20170905
  Transmission Date: 20171127
  Serious: Yes (Other)
  Sender: FDA-Public Use
  Company Number: PHHY2011JP124636

PATIENT
  Age: 15 Year
  Sex: Male
  Weight: 48 kg

DRUGS (23)
  1. PREDONINE [Concomitant]
     Active Substance: PREDNISOLONE
     Indication: PRODUCT USED FOR UNKNOWN INDICATION
     Route: 051
     Dates: start: 20091117, end: 20091130
  2. ARRANON [Suspect]
     Active Substance: NELARABINE
     Indication: T-CELL TYPE ACUTE LEUKAEMIA
     Dosage: 650 MG/M2, QD
     Route: 041
     Dates: start: 20080519, end: 20080523
  3. METHOTREXATE. [Concomitant]
     Active Substance: METHOTREXATE
     Dosage: UNK
     Route: 029
     Dates: start: 20080409, end: 20080409
  4. FLUDARABINE PHOSPHATE. [Concomitant]
     Active Substance: FLUDARABINE PHOSPHATE
     Indication: NEOPLASM MALIGNANT
     Dosage: 30 MG/M2,
     Route: 042
     Dates: start: 20080616, end: 20080619
  5. DECADRON [Concomitant]
     Active Substance: DEXAMETHASONE
     Indication: NEOPLASM MALIGNANT
     Route: 048
     Dates: start: 20080409, end: 20080413
  6. PREDONINE [Concomitant]
     Active Substance: PREDNISOLONE
     Indication: PRODUCT USED FOR UNKNOWN INDICATION
     Route: 048
     Dates: start: 20091201, end: 20091210
  7. ARRANON [Suspect]
     Active Substance: NELARABINE
     Dosage: QD
     Route: 041
     Dates: start: 20100118, end: 20100122
  8. LEUKERIN [Concomitant]
     Active Substance: MERCAPTOPURINE
     Indication: NEOPLASM MALIGNANT
     Route: 048
     Dates: start: 20080409, end: 20080413
  9. CYLOCIDE [Concomitant]
     Active Substance: CYTARABINE
     Dosage: 4000 MG/M2,
     Route: 051
     Dates: start: 20080718, end: 20080718
  10. SOLU-CORTEF [Concomitant]
     Active Substance: HYDROCORTISONE SODIUM SUCCINATE
     Indication: NEOPLASM MALIGNANT
     Route: 029
     Dates: start: 20080409, end: 20080409
  11. TAKEPRON [Concomitant]
     Active Substance: LANSOPRAZOLE
     Indication: PRODUCT USED FOR UNKNOWN INDICATION
     Route: 048
     Dates: start: 20080409, end: 20080423
  12. ARRANON [Suspect]
     Active Substance: NELARABINE
     Dosage: 650 MG/M2, QD
     Route: 041
     Dates: start: 20091116, end: 20091120
  13. CYLOCIDE [Concomitant]
     Active Substance: CYTARABINE
     Route: 042
     Dates: start: 20080413, end: 20080413
  14. ARRANON [Suspect]
     Active Substance: NELARABINE
     Dosage: 650 MG/M2, QD
     Route: 041
     Dates: start: 20100208, end: 20100212
  15. METHOTREXATE. [Concomitant]
     Active Substance: METHOTREXATE
     Indication: NEOPLASM MALIGNANT
     Dosage: UNK
     Route: 042
     Dates: start: 20080409, end: 20080409
  16. CYLOCIDE [Concomitant]
     Active Substance: CYTARABINE
     Indication: NEOPLASM MALIGNANT
     Route: 029
     Dates: start: 20080409, end: 20080409
  17. GASTER [Concomitant]
     Active Substance: FAMOTIDINE
     Indication: PRODUCT USED FOR UNKNOWN INDICATION
     Route: 048
     Dates: start: 20080302, end: 20080408
  18. ONCOVIN [Concomitant]
     Active Substance: VINCRISTINE SULFATE
     Indication: NEOPLASM MALIGNANT
     Route: 042
     Dates: start: 20080409, end: 20080409
  19. ENDOXAN [Concomitant]
     Active Substance: CYCLOPHOSPHAMIDE
     Indication: NEOPLASM MALIGNANT
     Dosage: 60 MG/KG,
     Route: 065
     Dates: start: 20080720, end: 20080721
  20. ZYLORIC [Concomitant]
     Active Substance: ALLOPURINOL
     Indication: PRODUCT USED FOR UNKNOWN INDICATION
     Route: 048
     Dates: start: 20091116, end: 20091206
  21. ARRANON [Suspect]
     Active Substance: NELARABINE
     Dosage: 650 MG/M2, QD
     Route: 041
     Dates: start: 20091228, end: 20100101
  22. ONCOVIN [Concomitant]
     Active Substance: VINCRISTINE SULFATE
     Dosage: UNK
     Route: 042
     Dates: start: 20080414, end: 20080414
  23. CYLOCIDE [Concomitant]
     Active Substance: CYTARABINE
     Dosage: 4000 MG/M2,
     Route: 051
     Dates: start: 20080616, end: 20080619

REACTIONS (4)
  - Device related infection [Recovered/Resolved]
  - Device related infection [Recovered/Resolved]
  - Sensory disturbance [Recovered/Resolved]
  - Bone marrow failure [Recovered/Resolved]

NARRATIVE: CASE EVENT DATE: 20080521
